FAERS Safety Report 5484260-4 (Version None)
Quarter: 2007Q4

REPORT INFORMATION
  Report Type: 
  Country: None (occurrence: None)
  Receive Date: 20071012
  Receipt Date: 20071008
  Transmission Date: 20080405
  Serious: Yes (Hospitalization)
  Sender: FDA-Public Use
  Company Number: US-ROXANE LABORATORIES, INC-2007-BP-21595RO

PATIENT
  Sex: Male
  Weight: 85 kg

DRUGS (11)
  1. PREDNISONE TAB [Suspect]
     Indication: PROSTATE CANCER METASTATIC
     Route: 048
     Dates: start: 20070628
  2. ENZASTAURIN [Suspect]
     Indication: PROSTATE CANCER METASTATIC
     Route: 048
     Dates: start: 20070601
  3. ENZASTAURIN [Suspect]
     Route: 048
     Dates: start: 20070602
  4. DOCETAXEL [Suspect]
     Indication: PROSTATE CANCER METASTATIC
     Route: 042
     Dates: start: 20070628
  5. MONOPRIL [Concomitant]
     Dates: start: 20060712
  6. DEXAMETHASONE 0.5MG TAB [Concomitant]
     Dates: start: 20070628
  7. ZOCOR [Concomitant]
     Dates: start: 20070427
  8. HYDROCHLOROTHIAZIDE [Concomitant]
     Dates: start: 20070427
  9. CALCIUM D (ASCORBIC ACID, CAL+ GLUCONATE, CA+ LACTATE, CAL+ PHOSPH) [Concomitant]
     Dates: start: 20070427
  10. ZOLADEX [Concomitant]
     Dates: start: 20060612
  11. PLAVIX [Concomitant]
     Dates: start: 20060920, end: 20070825

REACTIONS (1)
  - THROMBOSIS [None]
